FAERS Safety Report 19628859 (Version 1)
Quarter: 2021Q3

REPORT INFORMATION
  Report Type: Spontaneous
  Country: US (occurrence: US)
  Receive Date: 20210729
  Receipt Date: 20210729
  Transmission Date: 20211014
  Serious: No
  Sender: FDA-Public Use
  Company Number: US-TEVA-2021-US-1936610

PATIENT
  Age: 59 Year
  Sex: Female

DRUGS (2)
  1. IRON [Concomitant]
     Active Substance: IRON
     Route: 065
     Dates: start: 20210714
  2. METRONIDAZOLE. [Suspect]
     Active Substance: METRONIDAZOLE
     Indication: GASTROINTESTINAL BACTERIAL OVERGROWTH
     Route: 065
     Dates: start: 20210713, end: 202107

REACTIONS (4)
  - Diarrhoea [Unknown]
  - Dysgeusia [Unknown]
  - Drug intolerance [Not Recovered/Not Resolved]
  - Decreased appetite [Unknown]

NARRATIVE: CASE EVENT DATE: 202107
